FAERS Safety Report 10076313 (Version 1)
Quarter: 2014Q2

REPORT INFORMATION
  Report Type: Spontaneous
  Country: CA (occurrence: CA)
  Receive Date: 20140414
  Receipt Date: 20140414
  Transmission Date: 20141212
  Serious: Yes (Hospitalization)
  Sender: FDA-Public Use
  Company Number: CA-BAXTER-2014BAX017243

PATIENT
  Age: 64 Year
  Sex: Male

DRUGS (4)
  1. DIANEAL PD4 SOLUTION WITH 1.5% DEXTROSE AND 2.5 MEQ/L CALCIUM [Suspect]
     Indication: DIABETIC END STAGE RENAL DISEASE
     Dosage: 2 BAGS
     Route: 033
  2. DIANEAL PD4 SOLUTION WITH 1.5% DEXTROSE AND 2.5 MEQ/L CALCIUM [Suspect]
     Indication: PERITONEAL DIALYSIS
     Dosage: 3 BAGS
     Route: 033
  3. EXTRANEAL [Suspect]
     Indication: DIABETIC END STAGE RENAL DISEASE
     Dosage: 1 BAG
     Route: 033
  4. EXTRANEAL [Suspect]
     Indication: PERITONEAL DIALYSIS

REACTIONS (4)
  - Hypophagia [Recovering/Resolving]
  - Influenza [Recovering/Resolving]
  - Dyspepsia [Recovering/Resolving]
  - Blood potassium decreased [Recovering/Resolving]
